FAERS Safety Report 8364875-6 (Version None)
Quarter: 2012Q1

REPORT INFORMATION
  Report Type: 
  Country: None (occurrence: None)
  Receive Date: 20120323
  Receipt Date: 20111213
  Transmission Date: 20120608
  Serious: Yes (Life-Threatening, Hospitalization, Other)
  Sender: FDA-Public Use
  Company Number: 163-21880-11111933

PATIENT
  Age: 81 Year
  Sex: Female

DRUGS (15)
  1. ASPIRIN [Concomitant]
  2. LASIX [Concomitant]
  3. METOPROLOL SUCCINATE XL (METOPROLOL SUCCINATE) [Concomitant]
  4. IVIG (IMMUNOGLOBULIN) [Concomitant]
  5. IMDUR [Concomitant]
  6. ARANESP [Concomitant]
  7. DIOVAN [Concomitant]
  8. DEXAMETHASONE [Concomitant]
  9. REVLIMID [Suspect]
     Indication: MULTIPLE MYELOMA
     Dosage: 5 MG, Q 48H X 21 DAYS, PO
     Route: 048
     Dates: start: 20110622, end: 20110901
  10. VERAPAMIL SR (VERAPAMIL HYDROCHLORIDE) [Concomitant]
  11. SIMVASTATIN [Concomitant]
  12. ACETAMINOPHEN [Concomitant]
  13. HYDRALAZINE HCL [Concomitant]
  14. ALBUTEROL [Concomitant]
  15. DARBEPOETIN ALFA (DARBEPOETIN ALFA) [Concomitant]

REACTIONS (2)
  - DEEP VEIN THROMBOSIS [None]
  - GASTROINTESTINAL HAEMORRHAGE [None]
